FAERS Safety Report 7353072-9 (Version None)
Quarter: 2011Q1

REPORT INFORMATION
  Report Type: 
  Country: None (occurrence: None)
  Receive Date: 20110315
  Receipt Date: 20110310
  Transmission Date: 20110831
  Serious: Yes (Life-Threatening)
  Sender: FDA-Public Use
  Company Number: B0705218A

PATIENT
  Sex: Male

DRUGS (8)
  1. RIVOTRIL [Concomitant]
     Route: 065
  2. RIFADIN [Concomitant]
     Route: 065
  3. TROSPIUM CHLORIDE [Concomitant]
  4. VAXIGRIP [Suspect]
     Indication: PROPHYLAXIS
     Route: 030
     Dates: start: 20110112, end: 20110112
  5. PHYSIOTHERAPY [Concomitant]
  6. PNEUMO 23 [Suspect]
     Indication: PROPHYLAXIS
     Route: 030
     Dates: start: 20110112, end: 20110112
  7. TAVANIC [Concomitant]
     Route: 065
  8. REQUIP [Suspect]
     Dosage: .5MG PER DAY
     Route: 048

REACTIONS (8)
  - MALAISE [None]
  - FEELING ABNORMAL [None]
  - RESPIRATORY ARREST [None]
  - VERTIGO [None]
  - TINNITUS [None]
  - FALL [None]
  - LOSS OF CONSCIOUSNESS [None]
  - VISION BLURRED [None]
